FAERS Safety Report 18078786 (Version 1)
Quarter: 2020Q3

REPORT INFORMATION
  Report Type: Spontaneous
  Country: US (occurrence: US)
  Receive Date: 20200727
  Receipt Date: 20200727
  Transmission Date: 20201103
  Serious: No
  Sender: FDA-Public Use
  Company Number: None

PATIENT
  Age: 63 Year
  Sex: Male

DRUGS (7)
  1. LUPRON [Concomitant]
     Active Substance: LEUPROLIDE ACETATE
  2. GAHAPENTIH [Concomitant]
  3. ZYTIGA [Suspect]
     Active Substance: ABIRATERONE ACETATE
     Indication: PROSTATE CANCER
     Route: 048
  4. PHENAZOPVRIDIHE [Concomitant]
  5. PREDNISONE. [Concomitant]
     Active Substance: PREDNISONE
  6. TYLENOL [Concomitant]
     Active Substance: ACETAMINOPHEN
  7. ALFUZOSIN [Concomitant]
     Active Substance: ALFUZOSIN

REACTIONS (1)
  - Pain in extremity [None]
